FAERS Safety Report 5063577-1 (Version None)
Quarter: 2006Q3

REPORT INFORMATION
  Report Type: 
  Country: None (occurrence: None)
  Receive Date: 20060724
  Receipt Date: 20060714
  Transmission Date: 20061208
  Serious: Yes (Other)
  Sender: FDA-Public Use
  Company Number: 805#1#2006-00086

PATIENT
  Age: 82 Year
  Sex: Female

DRUGS (1)
  1. ALPROSTADIL [Suspect]
     Indication: ARTERIOSCLEROSIS OBLITERANS
     Dosage: 40 MCG INTRAVENOUS DRIP
     Route: 041
     Dates: start: 20060704, end: 20060711

REACTIONS (1)
  - HYPONATRAEMIA [None]
